FAERS Safety Report 23707867 (Version 1)
Quarter: 2024Q2

REPORT INFORMATION
  Report Type: Spontaneous
  Country: DE (occurrence: DE)
  Receive Date: 20240404
  Receipt Date: 20240404
  Transmission Date: 20240716
  Serious: Yes (Other)
  Sender: FDA-Public Use
  Company Number: DE-BIOVITRUM-2024-DE-005233

PATIENT
  Age: 9 Decade
  Sex: Male

DRUGS (1)
  1. ANAKINRA [Suspect]
     Active Substance: ANAKINRA
     Indication: Chondrocalcinosis
     Dosage: STARTING DOSAGE 2 MG/KG DAILY

REACTIONS (6)
  - Pancytopenia [Unknown]
  - Hyperchromic anaemia [Unknown]
  - Myelodysplastic syndrome [Unknown]
  - VEXAS syndrome [Unknown]
  - Dysplasia [Unknown]
  - Off label use [Unknown]
